FAERS Safety Report 10214854 (Version 1)
Quarter: 2014Q2

REPORT INFORMATION
  Report Type: Report from Study
  Country: FR (occurrence: FR)
  Receive Date: 20140603
  Receipt Date: 20140603
  Transmission Date: 20141212
  Serious: Yes (Hospitalization)
  Sender: FDA-Public Use
  Company Number: FR-BAXTER-2014BAX027304

PATIENT
  Age: 25 Year
  Sex: Female

DRUGS (3)
  1. ENDOXAN 100 MG, POUDRE POUR SOLUTION INJECTABLE [Suspect]
     Indication: STEM CELL TRANSPLANT
     Route: 042
     Dates: start: 20110128, end: 20110129
  2. BUSILVEX [Suspect]
     Indication: STEM CELL TRANSPLANT
     Route: 065
     Dates: start: 20110124, end: 20110127
  3. SOLU-MEDROL [Suspect]
     Indication: ACUTE GRAFT VERSUS HOST DISEASE
     Route: 065
     Dates: start: 2011

REACTIONS (1)
  - Osteonecrosis [Recovered/Resolved]
